FAERS Safety Report 7595408-X (Version None)
Quarter: 2011Q3

REPORT INFORMATION
  Report Type: 
  Country: None (occurrence: None)
  Receive Date: 20110707
  Receipt Date: 20110704
  Transmission Date: 20111222
  Serious: Yes (Hospitalization)
  Sender: FDA-Public Use
  Company Number: JP-ROCHE-683954

PATIENT
  Age: 44 Year
  Sex: Female

DRUGS (7)
  1. MAGNESIUM SULFATE [Concomitant]
     Route: 048
  2. XELODA [Suspect]
     Indication: LARGE INTESTINE CARCINOMA
     Route: 048
     Dates: start: 20090930, end: 20091013
  3. PHENYTOIN [Interacting]
     Indication: LARGE INTESTINE CARCINOMA
     Dosage: DIVIDED INTO 2 DOSES
     Route: 048
  4. DEPAKENE [Concomitant]
     Route: 048
  5. DEPAKENE [Concomitant]
     Route: 048
  6. XELODA [Interacting]
     Route: 048
     Dates: start: 20091021, end: 20091103
  7. ALMARL [Concomitant]
     Route: 048

REACTIONS (3)
  - DRUG LEVEL INCREASED [None]
  - DRUG INTERACTION [None]
  - TOXICITY TO VARIOUS AGENTS [None]
